FAERS Safety Report 10166032 (Version 1)
Quarter: 2014Q2

REPORT INFORMATION
  Report Type: Spontaneous
  Country: US (occurrence: US)
  Receive Date: 20140511
  Receipt Date: 20140511
  Transmission Date: 20141212
  Serious: Yes (Hospitalization)
  Sender: FDA-Public Use
  Company Number: US-BRISTOL-MYERS SQUIBB COMPANY-20690467

PATIENT
  Age: 70 Year
  Sex: Male
  Weight: 117.91 kg

DRUGS (7)
  1. BYDUREON [Suspect]
     Indication: TYPE 2 DIABETES MELLITUS
     Route: 058
  2. GLIMEPIRIDE [Suspect]
     Indication: TYPE 2 DIABETES MELLITUS
     Route: 048
  3. LISINOPRIL [Concomitant]
     Route: 048
  4. HCTZ [Concomitant]
     Dosage: PRIAMP/HCTZ:37.5/25 MG HALF TABLET
     Route: 048
  5. NEXIUM [Concomitant]
     Route: 048
  6. PRAVASTATIN SODIUM [Concomitant]
     Dosage: QHS
     Route: 048
  7. LYRICA [Concomitant]
     Route: 048

REACTIONS (5)
  - Thrombosis [Recovering/Resolving]
  - Pulmonary thrombosis [Recovering/Resolving]
  - Blood glucose fluctuation [Unknown]
  - Hypertension [Unknown]
  - Underdose [Unknown]
